FAERS Safety Report 18793507 (Version 1)
Quarter: 2021Q1

REPORT INFORMATION
  Report Type: Spontaneous
  Country: US (occurrence: US)
  Receive Date: 20210127
  Receipt Date: 20210127
  Transmission Date: 20210419
  Serious: No
  Sender: FDA-Public Use
  Company Number: US-SA-2021SA024638

PATIENT
  Age: 56 Year
  Sex: Female
  Weight: 90.7 kg

DRUGS (1)
  1. DUPIXENT [Suspect]
     Active Substance: DUPILUMAB
     Indication: DERMATITIS ATOPIC
     Dosage: 300 MG, QOW
     Route: 058
     Dates: start: 202001

REACTIONS (4)
  - Pruritus [Unknown]
  - Skin fissures [Unknown]
  - Skin exfoliation [Unknown]
  - Dry skin [Unknown]

NARRATIVE: CASE EVENT DATE: 202012
